FAERS Safety Report 15352414 (Version 2)
Quarter: 2018Q4

REPORT INFORMATION
  Report Type: Spontaneous
  Country: AU (occurrence: AU)
  Receive Date: 20180905
  Receipt Date: 20181112
  Transmission Date: 20190204
  Serious: Yes (Disabling, Other)
  Sender: FDA-Public Use
  Company Number: AU-GLAXOSMITHKLINE-AU2017GSK075521

PATIENT
  Age: 44 Year
  Sex: Male
  Weight: 107 kg

DRUGS (2)
  1. DOXYCYCLINE. [Concomitant]
     Active Substance: DOXYCYCLINE
     Indication: PRODUCT USED FOR UNKNOWN INDICATION
  2. TAFENOQUINE [Suspect]
     Active Substance: TAFENOQUINE
     Indication: PRODUCT USED FOR UNKNOWN INDICATION
     Dosage: 400 MG, 1D
     Dates: start: 19990327, end: 19990329

REACTIONS (9)
  - Headache [Recovered/Resolved]
  - Frustration tolerance decreased [Unknown]
  - Nausea [Recovered/Resolved]
  - Anxiety [Unknown]
  - Malaise [Recovered/Resolved]
  - Depression [Not Recovered/Not Resolved]
  - Anger [Unknown]
  - Loss of consciousness [Recovered/Resolved]
  - Adjustment disorder [Not Recovered/Not Resolved]

NARRATIVE: CASE EVENT DATE: 19990327
